FAERS Safety Report 12483774 (Version 2)
Quarter: 2016Q3

REPORT INFORMATION
  Report Type: Spontaneous
  Country: US (occurrence: US)
  Receive Date: 20160621
  Receipt Date: 20160711
  Transmission Date: 20161109
  Serious: No
  Sender: FDA-Public Use
  Company Number: US-PFIZER INC-2016286751

PATIENT
  Age: 76 Year
  Sex: Female

DRUGS (1)
  1. LYRICA [Suspect]
     Active Substance: PREGABALIN
     Indication: POST POLIO SYNDROME
     Dosage: 100 MG, 1X/DAY
     Dates: start: 20160210

REACTIONS (1)
  - Drug withdrawal syndrome [Recovered/Resolved]
